FAERS Safety Report 11766079 (Version 2)
Quarter: 2015Q4

REPORT INFORMATION
  Report Type: Spontaneous
  Country: CA (occurrence: CA)
  Receive Date: 20151122
  Receipt Date: 20151122
  Transmission Date: 20160304
  Serious: Yes (Hospitalization, Other)
  Sender: FDA-Public Use
  Company Number: CA-APOTEX-2015AP014674

PATIENT
  Age: 60 Year
  Sex: Male

DRUGS (17)
  1. APO-VENLAFAXINE XR [Suspect]
     Active Substance: VENLAFAXINE HYDROCHLORIDE
     Indication: MAJOR DEPRESSION
     Dosage: 150 MG, UNK
     Route: 065
  2. BUPROPION. [Suspect]
     Active Substance: BUPROPION
     Indication: MAJOR DEPRESSION
     Dosage: 350 MG, UNK
     Route: 065
  3. APO-QUETIAPINE [Suspect]
     Active Substance: QUETIAPINE
     Dosage: 600 MG
     Route: 065
  4. APO-ZOPICLONE [Suspect]
     Active Substance: ZOPICLONE
     Dosage: 15 MG, UNK
     Route: 065
  5. APO-TEMAZEPAM [Suspect]
     Active Substance: TEMAZEPAM
     Dosage: 30 UNK, UNK
     Route: 065
  6. APO-MIRTAZAPINE [Suspect]
     Active Substance: MIRTAZAPINE
     Indication: MAJOR DEPRESSION
     Dosage: 45 MG, UNK
     Route: 065
  7. APO-LITHIUM CARBONATE [Suspect]
     Active Substance: LITHIUM CARBONATE
     Dosage: 1050 MG, UNK
     Route: 065
  8. METHOTRIMEPRAZINE                  /00038601/ [Suspect]
     Active Substance: LEVOMEPROMAZINE
     Dosage: 25 UNK, UNK
     Route: 065
  9. APO-LAMOTRIGINE [Suspect]
     Active Substance: LAMOTRIGINE
     Indication: DEPRESSION
     Dosage: UNK
     Route: 065
  10. APO-FLURAZEPAM [Suspect]
     Active Substance: FLURAZEPAM HYDROCHLORIDE
     Dosage: 15 MG, UNK
     Route: 065
  11. APO-ZOPICLONE [Suspect]
     Active Substance: ZOPICLONE
     Indication: MAJOR DEPRESSION
     Dosage: 7.5 MG, UNK
     Route: 065
  12. METHOTRIMEPRAZINE /00038601/ [Suspect]
     Active Substance: LEVOMEPROMAZINE
     Indication: MAJOR DEPRESSION
     Dosage: 50 MG, UNK
     Route: 065
  13. APO-QUETIAPINE [Suspect]
     Active Substance: QUETIAPINE
     Indication: MAJOR DEPRESSION
     Dosage: 200 MG, UNK
     Route: 065
  14. APO-LAMOTRIGINE [Suspect]
     Active Substance: LAMOTRIGINE
     Dosage: 75 MG, UNK
     Route: 065
  15. APO-NORTRIPTYLINE [Suspect]
     Active Substance: NORTRIPTYLINE
     Indication: MAJOR DEPRESSION
     Dosage: 50 MG, UNK
     Route: 065
  16. APO-QUETIAPINE [Suspect]
     Active Substance: QUETIAPINE
     Dosage: DOSE INCREASED TO 300 MG
     Route: 065
  17. APO-LITHIUM CARBONATE [Suspect]
     Active Substance: LITHIUM CARBONATE
     Indication: PRODUCT USED FOR UNKNOWN INDICATION
     Dosage: 600 MG, UNK
     Route: 065

REACTIONS (11)
  - Condition aggravated [Recovered/Resolved]
  - Drug intolerance [None]
  - Intentional self-injury [None]
  - Major depression [None]
  - Restless legs syndrome [Recovered/Resolved]
  - Drug ineffective [Recovered/Resolved]
  - Obsessive-compulsive disorder [Recovered/Resolved]
  - Sleep disorder [None]
  - Carbon monoxide poisoning [None]
  - No therapeutic response [None]
  - Suicide attempt [Recovered/Resolved]
